FAERS Safety Report 24051427 (Version 3)
Quarter: 2024Q3

REPORT INFORMATION
  Report Type: Spontaneous
  Country: US (occurrence: US)
  Receive Date: 20240704
  Receipt Date: 20240912
  Transmission Date: 20241016
  Serious: Yes (Other)
  Sender: PFIZER
  Company Number: US-PFIZER INC-202400205362

PATIENT
  Sex: Female
  Weight: 76.2 kg

DRUGS (2)
  1. PREMARIN [Suspect]
     Active Substance: ESTROGENS, CONJUGATED
     Indication: Hormone replacement therapy
     Dosage: 0.9MG, ONE TABLET ONCE A DAY IN THE MORNING
     Route: 048
     Dates: start: 1988
  2. PREMARIN [Suspect]
     Active Substance: ESTROGENS, CONJUGATED
     Indication: Hot flush

REACTIONS (2)
  - Thyroid mass [Unknown]
  - Panic attack [Unknown]
